APPROVED DRUG PRODUCT: NORETHINDRONE AND ETHINYL ESTRADIOL
Active Ingredient: ETHINYL ESTRADIOL; NORETHINDRONE
Strength: 0.035MG;0.4MG
Dosage Form/Route: TABLET;ORAL-28
Application: A078323 | Product #001 | TE Code: AB
Applicant: WATSON LABORATORIES INC
Approved: Feb 4, 2010 | RLD: No | RS: No | Type: RX